FAERS Safety Report 4761733-0 (Version None)
Quarter: 2005Q3

REPORT INFORMATION
  Report Type: 
  Country: None (occurrence: None)
  Receive Date: 20050906
  Receipt Date: 20050822
  Transmission Date: 20060218
  Serious: Yes (Hospitalization)
  Sender: FDA-Public Use
  Company Number: US-MERCK-0508USA04088

PATIENT
  Age: 59 Year
  Sex: Male
  Weight: 145 kg

DRUGS (9)
  1. VIOXX [Suspect]
     Indication: BACK PAIN
     Route: 048
     Dates: start: 20020101, end: 20030112
  2. VIOXX [Suspect]
     Indication: PAIN IN EXTREMITY
     Route: 048
     Dates: start: 20020101, end: 20030112
  3. ZOCOR [Concomitant]
     Route: 065
  4. INSULIN, BIPHASIC ISOPHANE [INJECTION] [Concomitant]
     Route: 065
  5. INSULIN, BIPHASIC ISOPHANE [INJECTION] [Concomitant]
     Route: 065
  6. INSULIN, BIPHASIC ISOPHANE [INJECTION] [Concomitant]
     Route: 065
  7. ELAVIL [Concomitant]
     Route: 065
  8. PREVACID [Concomitant]
     Route: 065
  9. AMITRIPTYLINE HYDROCHLORIDE [Concomitant]
     Route: 065

REACTIONS (10)
  - ACUTE MYOCARDIAL INFARCTION [None]
  - ANGINA PECTORIS [None]
  - CARDIOMEGALY [None]
  - CARDIOVASCULAR DISORDER [None]
  - CORONARY ARTERY DISEASE [None]
  - HYPERCHOLESTEROLAEMIA [None]
  - LUMBAR SPINAL STENOSIS [None]
  - NON-CARDIAC CHEST PAIN [None]
  - RIB FRACTURE [None]
  - SOFT TISSUE INFECTION [None]
